FAERS Safety Report 3761935 (Version 4)
Quarter: 2015Q2

REPORT INFORMATION
  Report Type: Spontaneous
  Country: JP (occurrence: JP)
  Receive Date: 20020206
  Receipt Date: 20150417
  Transmission Date: 20150821
  Serious: Yes (Death, Other)
  Sender: FDA-Public Use
  Company Number: PHBS2002JP00781

PATIENT
  Age: 78 Year
  Sex: Female
  Weight: 35 kg

DRUGS (6)
  1. HYDREA [Concomitant]
     Active Substance: HYDROXYUREA
     Dosage: 500 MG/D
     Dates: start: 20011204, end: 20011212
  2. GASTER [Concomitant]
     Active Substance: FAMOTIDINE
     Dosage: 40 MG/D
     Dates: start: 20011018, end: 20020127
  3. GLIVEC [Suspect]
     Active Substance: IMATINIB MESYLATE
     Indication: BLAST CRISIS IN MYELOGENOUS LEUKAEMIA
     Dosage: 400 MG/DAY
     Route: 048
     Dates: start: 20011210, end: 20020125
  4. GLIVEC [Suspect]
     Active Substance: IMATINIB MESYLATE
     Indication: CHRONIC MYELOID LEUKAEMIA
     Route: 048
     Dates: start: 20011210, end: 20020124
  5. HYDREA [Concomitant]
     Active Substance: HYDROXYUREA
     Dosage: 500 MG/D
     Dates: start: 20020104, end: 20020107
  6. HYDREA [Concomitant]
     Active Substance: HYDROXYUREA
     Dosage: 1 G/DAY
     Dates: start: 20011213, end: 20020103

REACTIONS (8)
  - Pneumonia [Fatal]
  - Dyspnoea [Fatal]
  - Fall [Unknown]
  - Platelet count decreased [Not Recovered/Not Resolved]
  - Face oedema [Not Recovered/Not Resolved]
  - Oedema peripheral [Not Recovered/Not Resolved]
  - Thrombocytopenia [Not Recovered/Not Resolved]
  - Cough [Fatal]

NARRATIVE: CASE EVENT DATE: 20011225
